FAERS Safety Report 8158347-1 (Version None)
Quarter: 2012Q1

REPORT INFORMATION
  Report Type: 
  Country: None (occurrence: None)
  Receive Date: 20120223
  Receipt Date: 20120215
  Transmission Date: 20120608
  Serious: Yes (Life-Threatening)
  Sender: FDA-Public Use
  Company Number: IT-ACCORD-012442

PATIENT
  Sex: Female

DRUGS (1)
  1. PACLITAXEL [Suspect]

REACTIONS (5)
  - LOSS OF CONSCIOUSNESS [None]
  - ASPHYXIA [None]
  - HYPERTENSION [None]
  - NAUSEA [None]
  - RASH [None]
